FAERS Safety Report 10254698 (Version 1)
Quarter: 2014Q2

REPORT INFORMATION
  Report Type: Spontaneous
  Country: US (occurrence: US)
  Receive Date: 20140624
  Receipt Date: 20140624
  Transmission Date: 20141212
  Serious: No
  Sender: FDA-Public Use
  Company Number: US-AMGEN-USASP2014045577

PATIENT
  Age: 58 Year
  Sex: Female

DRUGS (8)
  1. ENBREL [Suspect]
     Indication: PRODUCT USED FOR UNKNOWN INDICATION
     Dosage: 50 MG, QWK
     Route: 058
  2. PLAQUENIL                          /00072602/ [Concomitant]
     Dosage: 200 MG, UNK
  3. ZYRTEC [Concomitant]
     Dosage: 10 MG, UNK
  4. SIMVASTATIN [Concomitant]
     Dosage: 10 MG, UNK
  5. FISH OIL [Concomitant]
     Dosage: UNK
  6. ALEVE [Concomitant]
     Dosage: 220 MG, UNK
  7. CALCIUM [Concomitant]
     Dosage: 500 MG, UNK
  8. LEVOCETIRIZIN [Concomitant]
     Dosage: 5 MG, UNK

REACTIONS (4)
  - Malaise [Unknown]
  - Medication overuse headache [Unknown]
  - Tooth disorder [Unknown]
  - Bronchitis [Unknown]
